FAERS Safety Report 7995206-9 (Version None)
Quarter: 2011Q4

REPORT INFORMATION
  Report Type: 
  Country: None (occurrence: None)
  Receive Date: 20111220
  Receipt Date: 20111205
  Transmission Date: 20120403
  Serious: Yes (Hospitalization)
  Sender: FDA-Public Use
  Company Number: FR-PFIZER INC-2011106155

PATIENT
  Age: 70 Year
  Sex: Male

DRUGS (3)
  1. RAMIPRIL [Suspect]
     Indication: HYPERTENSION
     Dosage: 5 MG, 2X/DAY
     Route: 048
     Dates: start: 20110401
  2. ACETYLSALICYLIC ACID [Concomitant]
  3. METOPROLOL SUCCINATE [Concomitant]

REACTIONS (1)
  - HAEMOPTYSIS [None]
